FAERS Safety Report 24937728 (Version 1)
Quarter: 2025Q1

REPORT INFORMATION
  Report Type: Spontaneous
  Country: GB (occurrence: GB)
  Receive Date: 20250206
  Receipt Date: 20250206
  Transmission Date: 20250409
  Serious: Yes (Disabling, Other)
  Sender: TEVA
  Company Number: None

PATIENT
  Age: 20 Year
  Sex: Male
  Weight: 121 kg

DRUGS (1)
  1. OLANZAPINE [Suspect]
     Active Substance: OLANZAPINE
     Indication: Adverse drug reaction
     Route: 065
     Dates: start: 2013, end: 2022

REACTIONS (21)
  - Liver injury [Recovering/Resolving]
  - Appetite disorder [Recovered/Resolved]
  - Joint lock [Recovering/Resolving]
  - Dizziness [Unknown]
  - Blood insulin [Recovering/Resolving]
  - Testicular disorder [Recovering/Resolving]
  - Vitamin D abnormal [Not Recovered/Not Resolved]
  - Blood thyroid stimulating hormone decreased [Recovering/Resolving]
  - Temporomandibular pain and dysfunction syndrome [Not Recovered/Not Resolved]
  - Insomnia [Recovered/Resolved]
  - Blood testosterone decreased [Recovering/Resolving]
  - Teeth brittle [Not Recovered/Not Resolved]
  - Testicular pain [Recovering/Resolving]
  - Blood glucose abnormal [Recovering/Resolving]
  - Low lung compliance [Recovered/Resolved]
  - Joint stiffness [Recovering/Resolving]
  - Iron deficiency [Unknown]
  - Medication error [Unknown]
  - Dry eye [Recovering/Resolving]
  - Overweight [Recovered/Resolved with Sequelae]
  - Schizophrenia [Recovering/Resolving]

NARRATIVE: CASE EVENT DATE: 20130101
